FAERS Safety Report 6253141-0 (Version None)
Quarter: 2009Q2

REPORT INFORMATION
  Report Type: 
  Country: None (occurrence: None)
  Receive Date: 20090629
  Receipt Date: 20090629
  Transmission Date: 20091009
  Serious: No
  Sender: FDA-Public Use
  Company Number: None

PATIENT
  Age: 5 Year
  Sex: Male
  Weight: 19.9583 kg

DRUGS (2)
  1. SINGULAIR [Suspect]
     Indication: MULTIPLE ALLERGIES
     Dosage: 5MG Q.D PO
     Route: 048
     Dates: start: 20080701, end: 20081230
  2. SINGULAIR [Suspect]
     Indication: MULTIPLE ALLERGIES
     Dosage: 5MG Q.D PO
     Route: 048
     Dates: start: 20090301, end: 20090421

REACTIONS (6)
  - ABNORMAL BEHAVIOUR [None]
  - AGGRESSION [None]
  - ANGER [None]
  - IMPULSE-CONTROL DISORDER [None]
  - IRRITABILITY [None]
  - THINKING ABNORMAL [None]
